FAERS Safety Report 5512173-8 (Version None)
Quarter: 2007Q4

REPORT INFORMATION
  Report Type: 
  Country: None (occurrence: None)
  Receive Date: 20071112
  Receipt Date: 20071105
  Transmission Date: 20080405
  Serious: Yes (Other)
  Sender: FDA-Public Use
  Company Number: PHBS2007SE18423

PATIENT
  Age: 65 Year
  Sex: Male

DRUGS (5)
  1. PAMIDRONATE DISODIUM [Suspect]
     Indication: MULTIPLE MYELOMA
     Route: 042
     Dates: start: 20040101, end: 20070101
  2. VELCADE [Concomitant]
  3. BACTRIM DS [Concomitant]
  4. PREDNISOLONE [Concomitant]
  5. ZOMETA [Suspect]
     Indication: MULTIPLE MYELOMA
     Dosage: 4 MG, UNK
     Route: 042
     Dates: start: 20020101, end: 20040101

REACTIONS (2)
  - BONE EROSION [None]
  - OSTEONECROSIS [None]
